FAERS Safety Report 5656941-0 (Version None)
Quarter: 2008Q1

REPORT INFORMATION
  Report Type: 
  Country: None (occurrence: None)
  Receive Date: 20080310
  Receipt Date: 20080307
  Transmission Date: 20080703
  Serious: Yes (Hospitalization, Other)
  Sender: FDA-Public Use
  Company Number: A0600113A

PATIENT
  Age: 50 Year
  Sex: Male

DRUGS (15)
  1. AVANDARYL [Suspect]
     Dosage: 1TAB PER DAY
     Route: 048
     Dates: start: 20060309, end: 20070601
  2. MEPROZINE [Concomitant]
  3. ANTIBIOTICS [Concomitant]
  4. TRAMADOL HCL [Concomitant]
     Route: 048
  5. NORTRIPTYLINE HYDROCHLORIDE [Concomitant]
     Route: 048
  6. METHYLPREDNISOLONE [Concomitant]
     Route: 048
  7. METOPROLOL SUCCINATE [Concomitant]
     Route: 048
  8. TOPROL-XL [Concomitant]
     Route: 048
  9. PROPOXY-N [Concomitant]
  10. AMBIEN [Concomitant]
     Route: 048
  11. NAPROXEN [Concomitant]
     Route: 048
  12. LYRICA [Concomitant]
     Route: 048
  13. FUROSEMIDE [Concomitant]
     Route: 048
  14. VIGAMOX [Concomitant]
  15. LIPITOR [Concomitant]
     Route: 048

REACTIONS (9)
  - ACTIVITIES OF DAILY LIVING IMPAIRED [None]
  - ADVERSE EVENT [None]
  - BLOOD GLUCOSE INCREASED [None]
  - EYE HAEMORRHAGE [None]
  - MACULAR OEDEMA [None]
  - VISION BLURRED [None]
  - VISUAL ACUITY REDUCED [None]
  - VISUAL DISTURBANCE [None]
  - WEIGHT INCREASED [None]
